FAERS Safety Report 9472355 (Version 1)
Quarter: 2013Q3

REPORT INFORMATION
  Report Type: Spontaneous
  Country: US (occurrence: US)
  Receive Date: 20130823
  Receipt Date: 20130823
  Transmission Date: 20140515
  Serious: No
  Sender: FDA-Public Use
  Company Number: US-JNJFOC-20130806344

PATIENT
  Age: 73 Year
  Sex: 0

DRUGS (2)
  1. INVEGA SUSTENNA [Suspect]
     Indication: SCHIZOPHRENIA
     Route: 030
  2. FUROSEMIDE [Concomitant]
     Route: 065

REACTIONS (1)
  - Adverse reaction [Not Recovered/Not Resolved]
